APPROVED DRUG PRODUCT: VELTASSA
Active Ingredient: PATIROMER SORBITEX CALCIUM
Strength: EQ 25.2GM BASE/PACKET
Dosage Form/Route: POWDER;ORAL
Application: N205739 | Product #003
Applicant: VIFOR PHARMA INC
Approved: Oct 21, 2015 | RLD: Yes | RS: No | Type: DISCN

PATENTS:
Patent 8337824 | Expires: May 29, 2030
Patent 9492476 | Expires: Oct 8, 2033
Patent 9925212 | Expires: Oct 8, 2033
Patent 8216560 | Expires: Mar 14, 2027
Patent 11123363 | Expires: Oct 8, 2033
Patent 8147873 | Expires: Jun 20, 2028
Patent 8282913 | Expires: May 29, 2027

EXCLUSIVITY:
Code: NPP | Date: Oct 2, 2026